FAERS Safety Report 12755837 (Version 2)
Quarter: 2016Q4

REPORT INFORMATION
  Report Type: Spontaneous
  Country: JP (occurrence: JP)
  Receive Date: 20160916
  Receipt Date: 20161213
  Transmission Date: 20170207
  Serious: Yes (Death)
  Sender: FDA-Public Use
  Company Number: JP-PFIZER INC-2016432662

PATIENT
  Age: 82 Year
  Sex: Female

DRUGS (1)
  1. ANAEMETRO [Suspect]
     Active Substance: METRONIDAZOLE
     Indication: CLOSTRIDIUM DIFFICILE COLITIS
     Dosage: 500 MG, 1X/DAY
     Route: 041
     Dates: start: 20150606, end: 20150606

REACTIONS (1)
  - Interstitial lung disease [Fatal]
